FAERS Safety Report 5014065-X (Version None)
Quarter: 2006Q2

REPORT INFORMATION
  Report Type: 
  Country: None (occurrence: None)
  Receive Date: 20060414
  Receipt Date: 20060203
  Transmission Date: 20061013
  Serious: No
  Sender: FDA-Public Use
  Company Number: 2006SP000603

PATIENT
  Age: 66 Year
  Sex: Female
  Weight: 68.0396 kg

DRUGS (7)
  1. LUNESTA [Suspect]
     Indication: INSOMNIA
     Dosage: 3 MG;PRN;ORAL
     Route: 048
     Dates: start: 20060101
  2. AMBIEN [Concomitant]
  3. ATORVASTATIN CALCIUM [Concomitant]
  4. ZETIA [Concomitant]
  5. FLEXERIL [Concomitant]
  6. ZANTAC [Concomitant]
  7. ANTIINFLAMMATORY/ANTIRHEUMATIC NON-STEROIDS [Concomitant]

REACTIONS (2)
  - DYSGEUSIA [None]
  - MIDDLE INSOMNIA [None]
